FAERS Safety Report 6891183-2 (Version None)
Quarter: 2010Q3

REPORT INFORMATION
  Report Type: 
  Country: None (occurrence: None)
  Receive Date: 20100731
  Receipt Date: 20090618
  Transmission Date: 20110219
  Serious: No
  Sender: FDA-Public Use
  Company Number: US-PFIZER INC-2009206627

PATIENT
  Sex: Female
  Weight: 105.22 kg

DRUGS (20)
  1. LIPITOR [Suspect]
     Indication: BLOOD CHOLESTEROL INCREASED
     Dosage: 10 MG, 1X/DAY
     Dates: end: 20090216
  2. ZETIA [Suspect]
     Indication: BLOOD CHOLESTEROL INCREASED
     Dosage: 10 MG, 1X/DAY
     Dates: start: 20080111, end: 20080101
  3. ACETYLSALICYLIC ACID [Concomitant]
     Dosage: UNK
  4. VITAMINS [Concomitant]
     Dosage: UNK
  5. VITAMIN E [Concomitant]
     Dosage: UNK
  6. ASCORBIC ACID [Concomitant]
     Dosage: UNK
  7. VITAMIN D [Concomitant]
     Dosage: UNK
  8. VITAMIN A [Concomitant]
     Dosage: UNK
  9. VITAMIN B-12 [Concomitant]
     Dosage: UNK
  10. CHROMIUM PICOLINATE [Concomitant]
     Dosage: UNK
  11. VITAMIN B6 [Concomitant]
     Dosage: UNK
  12. SELENIUM SULFIDE [Concomitant]
     Dosage: UNK
  13. SOYA LECITHIN [Concomitant]
     Dosage: UNK
  14. GARLIC [Concomitant]
     Dosage: UNK
  15. CALCIUM [Concomitant]
     Dosage: UNK
  16. OMEGA 3/VITAMIN E [Concomitant]
     Dosage: UNK
  17. MAGNESIUM [Concomitant]
     Dosage: UNK
  18. ZINC [Concomitant]
     Dosage: UNK
  19. METOPROLOL [Concomitant]
     Indication: ATRIAL FIBRILLATION
     Dosage: UNK
  20. LISINOPRIL [Concomitant]
     Indication: BLOOD PRESSURE ABNORMAL
     Dosage: UNK

REACTIONS (4)
  - BRONCHITIS [None]
  - DRUG INEFFECTIVE [None]
  - MUSCULOSKELETAL PAIN [None]
  - PAIN IN EXTREMITY [None]
